FAERS Safety Report 7362507-7 (Version None)
Quarter: 2011Q1

REPORT INFORMATION
  Report Type: 
  Country: None (occurrence: None)
  Receive Date: 20110318
  Receipt Date: 20110301
  Transmission Date: 20110831
  Serious: No
  Sender: FDA-Public Use
  Company Number: US-B.I. PHARMACEUTICALS,INC./RIDGEFIELD-2011-BP-06402BP

PATIENT
  Age: 80 Year
  Sex: Male

DRUGS (5)
  1. AVAPRO [Concomitant]
     Indication: CARDIAC DISORDER
     Route: 048
     Dates: start: 20110101
  2. NORVASC [Concomitant]
     Indication: HYPERTENSION
     Route: 048
     Dates: start: 20010101
  3. COREG [Concomitant]
     Indication: CARDIAC DISORDER
     Route: 048
  4. SINGULAIR [Concomitant]
     Indication: EMPHYSEMA
     Route: 048
     Dates: start: 20110101
  5. SPIRIVA [Suspect]
     Indication: EMPHYSEMA
     Dosage: 18 MCG
     Route: 055
     Dates: start: 20110101

REACTIONS (7)
  - HAEMATOCHEZIA [None]
  - DYSPEPSIA [None]
  - OEDEMA PERIPHERAL [None]
  - DYSPNOEA EXERTIONAL [None]
  - THERAPY REGIMEN CHANGED [None]
  - CONSTIPATION [None]
  - COUGH [None]
